FAERS Safety Report 10909743 (Version 1)
Quarter: 2015Q1

REPORT INFORMATION
  Report Type: Spontaneous
  Country: US (occurrence: US)
  Receive Date: 20150312
  Receipt Date: 20150312
  Transmission Date: 20150721
  Serious: No
  Sender: FDA-Public Use
  Company Number: US-SA-2014SA049125

PATIENT
  Age: 64 Year
  Sex: Female

DRUGS (1)
  1. NASACORT [Suspect]
     Active Substance: TRIAMCINOLONE ACETONIDE
     Indication: PRODUCT USED FOR UNKNOWN INDICATION
     Dosage: FROM-3-4 DAYS AGO.?DOSE:2 SPRAYS EACH SIDE.
     Route: 065

REACTIONS (4)
  - Neck pain [Unknown]
  - Headache [Unknown]
  - Hypertension [Unknown]
  - Anxiety [Unknown]
